FAERS Safety Report 7354212-8 (Version None)
Quarter: 2011Q1

REPORT INFORMATION
  Report Type: 
  Country: None (occurrence: None)
  Receive Date: 20110316
  Receipt Date: 20110307
  Transmission Date: 20110831
  Serious: No
  Sender: FDA-Public Use
  Company Number: US-BIOGENIDEC-2011BI000317

PATIENT
  Sex: Male

DRUGS (2)
  1. TYSABRI [Suspect]
     Indication: MULTIPLE SCLEROSIS
     Route: 042
     Dates: start: 20100513, end: 20110118
  2. TYSABRI [Suspect]
     Route: 042
     Dates: start: 20070828, end: 20081024

REACTIONS (9)
  - FUNGAL INFECTION [None]
  - ASTHENIA [None]
  - GENERAL SYMPTOM [None]
  - NUCLEAR MAGNETIC RESONANCE IMAGING ABNORMAL [None]
  - MULTIPLE SCLEROSIS RELAPSE [None]
  - ABNORMAL DREAMS [None]
  - OEDEMA PERIPHERAL [None]
  - HALLUCINATION, VISUAL [None]
  - MUSCULAR WEAKNESS [None]
